FAERS Safety Report 15013214 (Version 1)
Quarter: 2018Q2

REPORT INFORMATION
  Report Type: Report from Study
  Country: IT (occurrence: IT)
  Receive Date: 20180614
  Receipt Date: 20180614
  Transmission Date: 20180711
  Serious: Yes (Other)
  Sender: FDA-Public Use
  Company Number: IT-MYLANLABS-2018M1039384

PATIENT
  Age: 33 Year
  Sex: Female

DRUGS (2)
  1. PANACEF [Suspect]
     Active Substance: CEFACLOR
     Indication: PRODUCT USED FOR UNKNOWN INDICATION
     Dosage: 2MG/ML IN 0.9% SODIUM CHLORIDE.
     Route: 023
  2. AMPICILLIN/SULBACTAM [Suspect]
     Active Substance: AMPICILLIN SODIUM\SULBACTAM SODIUM
     Indication: PRODUCT USED FOR UNKNOWN INDICATION
     Route: 065

REACTIONS (3)
  - Rash maculo-papular [Unknown]
  - Type IV hypersensitivity reaction [Unknown]
  - Therapeutic product cross-reactivity [Unknown]
